FAERS Safety Report 9385443 (Version 3)
Quarter: 2014Q2

REPORT INFORMATION
  Report Type: Spontaneous
  Country: US (occurrence: US)
  Receive Date: 20130705
  Receipt Date: 20140530
  Transmission Date: 20141212
  Serious: Yes (Hospitalization)
  Sender: FDA-Public Use
  Company Number: US-GLAXOSMITHKLINE-A1030182A

PATIENT
  Age: 53 Year
  Sex: Male
  Weight: 97.3 kg

DRUGS (2)
  1. AVANDIA [Suspect]
     Indication: TYPE 2 DIABETES MELLITUS
     Dosage: 4MG PER DAY
     Route: 048
     Dates: start: 20020128, end: 20060107
  2. AVANDARYL [Suspect]
     Indication: TYPE 2 DIABETES MELLITUS
     Route: 048
     Dates: start: 20090424, end: 20090723

REACTIONS (4)
  - Myocardial infarction [Unknown]
  - Renal failure [Unknown]
  - Cardiac failure congestive [Unknown]
  - Coronary artery disease [Unknown]
